FAERS Safety Report 9260480 (Version 1)
Quarter: 2013Q2

REPORT INFORMATION
  Report Type: Other
  Country: US (occurrence: US)
  Receive Date: 20130429
  Receipt Date: 20130429
  Transmission Date: 20140414
  Serious: Yes (Death)
  Sender: FDA-Public Use
  Company Number: US-SHIRE-ALL1-2013-02608

PATIENT
  Age: 65 Year
  Sex: Male

DRUGS (2)
  1. FOSRENOL [Suspect]
     Indication: NEPHROPATHY
     Dosage: 1000 MG, 3X/DAY:TID
     Route: 048
  2. FOSRENOL [Suspect]
     Dosage: 500 MG, 2X/DAY:BID
     Route: 048

REACTIONS (1)
  - Death [Fatal]
